FAERS Safety Report 6657842-1 (Version None)
Quarter: 2010Q1

REPORT INFORMATION
  Report Type: 
  Country: None (occurrence: None)
  Receive Date: 20100330
  Receipt Date: 20100323
  Transmission Date: 20100710
  Serious: No
  Sender: FDA-Public Use
  Company Number: IE-ROCHE-425126

PATIENT
  Sex: Female
  Weight: 2.3 kg

DRUGS (1)
  1. TAMIFLU [Suspect]
     Dates: start: 20051026, end: 20051104

REACTIONS (3)
  - CONSTIPATION [None]
  - DELAYED FONTANELLE CLOSURE [None]
  - PREMATURE LABOUR [None]
